FAERS Safety Report 6395204-5 (Version None)
Quarter: 2009Q4

REPORT INFORMATION
  Report Type: 
  Country: None (occurrence: None)
  Receive Date: 20091009
  Receipt Date: 20090928
  Transmission Date: 20100525
  Serious: Yes (Other)
  Sender: FDA-Public Use
  Company Number: US-PFIZER INC-2009277339

PATIENT
  Age: 33 Year
  Sex: Female
  Weight: 108.84 kg

DRUGS (2)
  1. CHANTIX [Suspect]
     Indication: SMOKING CESSATION THERAPY
     Dosage: 0.5 MG, 2X/DAY
     Route: 048
     Dates: start: 20090907
  2. COMBIVENT [Concomitant]
     Indication: ASTHMA
     Dosage: UNK
     Route: 055

REACTIONS (3)
  - HALLUCINATION [None]
  - HOSTILITY [None]
  - WITHDRAWAL SYNDROME [None]
